FAERS Safety Report 6642939-2 (Version None)
Quarter: 2010Q1

REPORT INFORMATION
  Report Type: 
  Country: None (occurrence: None)
  Receive Date: 20100319
  Receipt Date: 20100308
  Transmission Date: 20100710
  Serious: Yes (Other)
  Sender: FDA-Public Use
  Company Number: US-JNJFOC-20100304146

PATIENT
  Age: 62 Year
  Sex: Male
  Weight: 83.92 kg

DRUGS (2)
  1. TYLENOL (CAPLET) [Suspect]
     Route: 048
  2. TYLENOL (CAPLET) [Suspect]
     Indication: PAIN
     Route: 048

REACTIONS (4)
  - DIARRHOEA [None]
  - GASTROINTESTINAL FUNGAL INFECTION [None]
  - NAUSEA [None]
  - PRODUCT QUALITY ISSUE [None]
